FAERS Safety Report 9402756 (Version 1)
Quarter: 2013Q3

REPORT INFORMATION
  Report Type: Spontaneous
  Country: CH (occurrence: CH)
  Receive Date: 20130716
  Receipt Date: 20130716
  Transmission Date: 20140515
  Serious: Yes (Hospitalization, Other)
  Sender: FDA-Public Use
  Company Number: CH-PFIZER INC-2013203238

PATIENT
  Age: 8 Year
  Sex: Female
  Weight: 30 kg

DRUGS (10)
  1. CARVEDILOL [Suspect]
     Indication: ADENOVIRUS INFECTION
     Dosage: 7 MG, 1X/DAY
     Route: 048
     Dates: start: 201212
  2. ALDACTONE [Suspect]
     Indication: ADENOVIRUS INFECTION
     Dosage: 12.5 MG, 1X/DAY
     Route: 048
     Dates: start: 201212
  3. NOPIL FORTE [Suspect]
     Indication: ADENOVIRUS INFECTION
     Dosage: 540 MG, 1X/DAY
     Route: 048
     Dates: start: 201212, end: 20130424
  4. NEXIUM [Suspect]
     Dosage: 40 MG, 1X/DAY
     Route: 048
     Dates: start: 201212, end: 20130424
  5. ESIDREX [Suspect]
     Indication: ADENOVIRUS INFECTION
     Dosage: 12.5 MG, 1X/DAY
     Route: 048
     Dates: start: 201212
  6. DIGOXIN [Suspect]
     Indication: ADENOVIRUS INFECTION
     Dosage: 0.1 MG, 1X/DAY
     Route: 048
     Dates: start: 201212
  7. CLEXANE [Suspect]
     Indication: ADENOVIRUS INFECTION
     Dosage: 27 MG, 1X/DAY
     Route: 058
     Dates: start: 201212
  8. VALTREX [Suspect]
     Dosage: 500 MG, 1X/DAY
     Route: 048
     Dates: start: 201212, end: 20130424
  9. MAGNESIOCARD [Concomitant]
     Dosage: 5 MMOL, 1X/DAY
     Route: 048
     Dates: start: 201212, end: 20130424
  10. KALIUM [Concomitant]
     Dosage: 30 MMOL, 1X/DAY
     Route: 048
     Dates: start: 201212, end: 20130424

REACTIONS (2)
  - Pancytopenia [Recovered/Resolved]
  - Off label use [Unknown]
